FAERS Safety Report 21930283 (Version 1)
Quarter: 2023Q1

REPORT INFORMATION
  Report Type: Report from Study
  Country: US (occurrence: US)
  Receive Date: 20230131
  Receipt Date: 20230131
  Transmission Date: 20230417
  Serious: Yes (Disabling, Other)
  Sender: FDA-Public Use
  Company Number: US-SA-SAC20230127001588

PATIENT
  Age: 43 Year
  Sex: Female

DRUGS (1)
  1. BELUMOSUDIL MESYLATE [Suspect]
     Active Substance: BELUMOSUDIL MESYLATE
     Indication: Graft versus host disease
     Dosage: 200 MG, BID
     Route: 048
     Dates: start: 20230104

REACTIONS (5)
  - Immobile [Unknown]
  - Self-injurious ideation [Unknown]
  - Emotional disorder [Unknown]
  - Abdominal pain upper [Unknown]
  - Nausea [Unknown]
